FAERS Safety Report 4890589-0 (Version None)
Quarter: 2006Q1

REPORT INFORMATION
  Report Type: 
  Country: None (occurrence: None)
  Receive Date: 20060123
  Receipt Date: 20060109
  Transmission Date: 20060701
  Serious: Yes (Hospitalization)
  Sender: FDA-Public Use
  Company Number: US200601001282

PATIENT
  Sex: Female

DRUGS (4)
  1. FORTEO [Suspect]
     Dates: start: 20030101
  2. FORTEO [Suspect]
  3. FORTEO [Concomitant]
  4. ASA (ASPIRIN (ACETYLSALICYLIC ACID) [Concomitant]

REACTIONS (2)
  - ABDOMINAL PAIN UPPER [None]
  - ANOREXIA [None]
